FAERS Safety Report 6155083-8 (Version None)
Quarter: 2009Q2

REPORT INFORMATION
  Report Type: 
  Country: None (occurrence: None)
  Receive Date: 20090410
  Receipt Date: 20090330
  Transmission Date: 20091009
  Serious: Yes (Death, Life-Threatening, Other)
  Sender: FDA-Public Use
  Company Number: ADE2009-0531

PATIENT
  Age: 3 Week

DRUGS (4)
  1. CEFTRIAXONE INJECTABLE [Suspect]
     Dosage: 80MG - Q24 HOURS - IV
     Route: 042
  2. CALCIUM GLUCONATE [Suspect]
     Dosage: 10% - UNK - IV
     Route: 042
  3. FLUMAZENIL [Concomitant]
  4. JOSAMYCIN [Concomitant]

REACTIONS (7)
  - CARDIO-RESPIRATORY ARREST [None]
  - CARDIOMYOPATHY [None]
  - ENDOCARDITIS [None]
  - MYOCARDIAL FIBROSIS [None]
  - MYOCARDITIS [None]
  - PULMONARY EMBOLISM [None]
  - RENAL EMBOLISM [None]
